FAERS Safety Report 9287267 (Version 1)
Quarter: 2013Q2

REPORT INFORMATION
  Report Type: Spontaneous
  Country: CA (occurrence: CA)
  Receive Date: 20130513
  Receipt Date: 20130513
  Transmission Date: 20140414
  Serious: Yes (Other)
  Sender: FDA-Public Use
  Company Number: CA-B.I. PHARMACEUTICALS,INC./RIDGEFIELD-2013-CN-00832CN

PATIENT
  Age: 78 Year
  Sex: Male

DRUGS (11)
  1. PRADAXA [Suspect]
     Dosage: 220 MG
     Route: 048
  2. ATENOLOL, BP [Concomitant]
  3. ATORVASTATIN CALCIUM [Concomitant]
  4. EZETROL [Concomitant]
  5. INDAPAMIDE [Concomitant]
  6. MELOXICAM [Concomitant]
  7. NIFEDIPINE [Concomitant]
  8. OXYNEO [Concomitant]
  9. PANTOPRAZOLE [Concomitant]
  10. QUINAPRIL [Concomitant]
  11. RATIO-OXYCOCET [Concomitant]

REACTIONS (3)
  - Asthenia [Not Recovered/Not Resolved]
  - Decreased appetite [Not Recovered/Not Resolved]
  - Weight decreased [Not Recovered/Not Resolved]
